FAERS Safety Report 4449712-4 (Version None)
Quarter: 2004Q3

REPORT INFORMATION
  Report Type: 
  Country: None (occurrence: None)
  Receive Date: 20040913
  Receipt Date: 20040901
  Transmission Date: 20050211
  Serious: Yes (Life-Threatening)
  Sender: FDA-Public Use
  Company Number: 2003166395JP

PATIENT
  Age: 65 Year
  Sex: Female

DRUGS (3)
  1. CAMPTOSAR [Suspect]
     Indication: RECTAL CANCER
     Dosage: 40 MG, CYCLIC, IV DRIP; SEE IMAGE
     Route: 041
     Dates: start: 20010808, end: 20010808
  2. CAMPTOSAR [Suspect]
     Indication: RECTAL CANCER
     Dosage: 40 MG, CYCLIC, IV DRIP; SEE IMAGE
     Route: 041
     Dates: start: 20010820, end: 20010911
  3. CISPLATIN [Suspect]
     Indication: RECTAL CANCER
     Dosage: 70 MG, CYCLIC, BIWEEKLY, IV DRIP
     Route: 041
     Dates: start: 20010820, end: 20010911

REACTIONS (26)
  - ALOPECIA [None]
  - BEDRIDDEN [None]
  - BLOOD GLUCOSE INCREASED [None]
  - BLOOD PRESSURE DIASTOLIC DECREASED [None]
  - CIRCULATORY COLLAPSE [None]
  - DECREASED ACTIVITY [None]
  - DIARRHOEA [None]
  - FEELING COLD [None]
  - HEADACHE [None]
  - LABORATORY TEST ABNORMAL [None]
  - LETHARGY [None]
  - LOSS OF CONSCIOUSNESS [None]
  - MALAISE [None]
  - MOVEMENT DISORDER [None]
  - NEUROPATHY [None]
  - PALLOR [None]
  - PALPITATIONS [None]
  - PULSE ABSENT [None]
  - PULSE PRESSURE DECREASED [None]
  - PUPILLARY REFLEX IMPAIRED [None]
  - RADIAL PULSE ABNORMAL [None]
  - RESPIRATORY ARREST [None]
  - RESPIRATORY DISORDER [None]
  - SKIN DISORDER [None]
  - SKIN IRRITATION [None]
  - SYNCOPE [None]
